FAERS Safety Report 8213047-4 (Version None)
Quarter: 2012Q1

REPORT INFORMATION
  Report Type: 
  Country: None (occurrence: None)
  Receive Date: 20120315
  Receipt Date: 20120312
  Transmission Date: 20120608
  Serious: Yes (Other)
  Sender: FDA-Public Use
  Company Number: US-PFIZER INC-2012066249

PATIENT
  Age: 74 Year
  Sex: Female
  Weight: 48.526 kg

DRUGS (6)
  1. CHANTIX [Suspect]
     Indication: SMOKING CESSATION THERAPY
     Dosage: UNK
  2. CHANTIX [Suspect]
     Dosage: 0.5 MG, 2X/DAY
     Route: 048
  3. ADVAIR DISKUS 100/50 [Concomitant]
     Indication: CHRONIC OBSTRUCTIVE PULMONARY DISEASE
     Dosage: UNK
  4. SPIRIVA [Concomitant]
     Indication: CHRONIC OBSTRUCTIVE PULMONARY DISEASE
     Dosage: UNK
  5. ZOLEDRONIC ACID [Concomitant]
     Indication: OSTEOPOROSIS
     Dosage: UNK
  6. ACETYLSALICYLIC ACID [Concomitant]
     Indication: SPINAL OSTEOARTHRITIS
     Dosage: 325 MG, DAILY

REACTIONS (5)
  - ANXIETY [None]
  - STRESS [None]
  - AGITATION [None]
  - ALCOHOL USE [None]
  - IRRITABILITY [None]
